FAERS Safety Report 9620397 (Version 1)
Quarter: 2013Q4

REPORT INFORMATION
  Report Type: Spontaneous
  Country: US (occurrence: US)
  Receive Date: 20131015
  Receipt Date: 20131015
  Transmission Date: 20140711
  Serious: No
  Sender: FDA-Public Use
  Company Number: -SAAVPROD-BMS16944720

PATIENT
  Sex: Female

DRUGS (2)
  1. AVALIDE TABS 150MG/12.5MG [Suspect]
     Indication: HYPERTENSION
     Dosage: STARTED WITH 300MG/25MG YEARS AGO CHANGED TO A LOWER DOSE,HALF TAB,FULL TAB
  2. AMLODIPINE [Concomitant]
     Indication: HYPERTENSION
     Dosage: 1 DF: HALF IN THE MORNING AND AT NIGHT

REACTIONS (2)
  - Labile blood pressure [Unknown]
  - Heart rate increased [Unknown]
